FAERS Safety Report 24328980 (Version 6)
Quarter: 2025Q1

REPORT INFORMATION
  Report Type: Spontaneous
  Country: US (occurrence: US)
  Receive Date: 20240917
  Receipt Date: 20250215
  Transmission Date: 20250409
  Serious: No
  Sender: TRAVERE THERAPEUTICS
  Company Number: US-TRAVERE-2024TVT00835

PATIENT
  Sex: Female

DRUGS (1)
  1. FILSPARI [Suspect]
     Active Substance: SPARSENTAN
     Indication: Product used for unknown indication
     Route: 048
     Dates: start: 20240215

REACTIONS (7)
  - Pollakiuria [Unknown]
  - Fatigue [None]
  - Illness [Unknown]
  - COVID-19 [Unknown]
  - Pyrexia [Unknown]
  - Pain [Unknown]
  - Nasal congestion [Unknown]
